FAERS Safety Report 13260022 (Version 1)
Quarter: 2017Q1

REPORT INFORMATION
  Report Type: Spontaneous
  Country: US (occurrence: US)
  Receive Date: 20170222
  Receipt Date: 20170222
  Transmission Date: 20170428
  Serious: No
  Sender: FDA-Public Use
  Company Number: US-TEVA-662135USA

PATIENT
  Sex: Female
  Weight: 54.48 kg

DRUGS (2)
  1. AMPHETAMINE W/DEXTROAMPHETAMINE [Suspect]
     Active Substance: AMPHETAMINE SULFATE\DEXTROAMPHETAMINE
     Indication: DISTURBANCE IN ATTENTION
  2. AMPHETAMINE W/DEXTROAMPHETAMINE [Suspect]
     Active Substance: AMPHETAMINE SULFATE\DEXTROAMPHETAMINE
     Indication: DISTURBANCE IN ATTENTION
     Dosage: 80 MILLIGRAM DAILY; TWO 20 MG TABLETS TWICE A DAY
     Route: 065

REACTIONS (4)
  - Somnolence [Unknown]
  - Intentional product use issue [Unknown]
  - Fatigue [Unknown]
  - Drug effect decreased [Unknown]
